FAERS Safety Report 6816484-5 (Version None)
Quarter: 2010Q3

REPORT INFORMATION
  Report Type: 
  Country: None (occurrence: None)
  Receive Date: 20100705
  Receipt Date: 20100625
  Transmission Date: 20110219
  Serious: Yes (Hospitalization, Other)
  Sender: FDA-Public Use
  Company Number: PHHY2010BR41943

PATIENT
  Sex: Male
  Weight: 108 kg

DRUGS (8)
  1. RASILEZ [Suspect]
     Indication: HYPERTENSION
     Dosage: 300 MG, UNK
     Route: 048
     Dates: start: 20091001
  2. ACETAMINOPHEN [Concomitant]
     Indication: SLEEP DISORDER
     Dosage: 1 MG, 1 TABLET AT NIGHT
     Dates: start: 20100401
  3. MODURETIC 5-50 [Concomitant]
     Indication: DIURETIC THERAPY
     Dosage: 0.25 MG, 1 TABLET DAILY
     Route: 048
     Dates: start: 20091001
  4. ATENSINA [Concomitant]
     Indication: HYPERTENSION
     Dosage: 150 MG, 1 TABLET AT NIGHT
     Route: 048
     Dates: start: 20091101
  5. CIPROFIBRATE [Concomitant]
     Indication: BLOOD TRIGLYCERIDES ABNORMAL
     Dosage: 100 MG, (1 TABLET AT DINNER)
     Route: 048
     Dates: start: 20091101
  6. DIAMICRON MR [Concomitant]
     Indication: DIABETES MELLITUS
     Dosage: 30 MG, (1 TABLET IN FASTING)
     Route: 048
     Dates: start: 20080101
  7. GLUCOBAY [Concomitant]
     Dosage: 50 MG, UNK
  8. PIOGLITAZONE HCL [Concomitant]
     Dosage: 30 MG, UNK

REACTIONS (2)
  - HAEMORRHOID OPERATION [None]
  - HAEMORRHOIDAL HAEMORRHAGE [None]
